FAERS Safety Report 16531638 (Version 1)
Quarter: 2019Q3

REPORT INFORMATION
  Report Type: Spontaneous
  Country: CN (occurrence: CN)
  Receive Date: 20190704
  Receipt Date: 20190704
  Transmission Date: 20191004
  Serious: Yes (Hospitalization)
  Sender: FDA-Public Use
  Company Number: CN-ASTELLAS-2019US027061

PATIENT
  Age: 69 Year
  Sex: Male

DRUGS (3)
  1. PROGRAF [Suspect]
     Active Substance: TACROLIMUS\TACROLIMUS ANHYDROUS
     Indication: PRODUCT USED FOR UNKNOWN INDICATION
     Dosage: 4 UNK, UNKNOWN FREQ.
     Route: 048
     Dates: start: 20190623
  2. PROGRAF [Suspect]
     Active Substance: TACROLIMUS\TACROLIMUS ANHYDROUS
     Dosage: INCREASED DOSE, UNKNOWN FREQ.
     Route: 065
     Dates: end: 20190627
  3. MYFORTIC [Suspect]
     Active Substance: MYCOPHENOLATE SODIUM
     Indication: PRODUCT USED FOR UNKNOWN INDICATION
     Dosage: 2 UNK, UNKNOWN FREQ.
     Route: 048
     Dates: start: 20190623

REACTIONS (1)
  - Immunosuppressant drug level decreased [Not Recovered/Not Resolved]

NARRATIVE: CASE EVENT DATE: 20190627
